FAERS Safety Report 12143837 (Version 1)
Quarter: 2016Q1

REPORT INFORMATION
  Report Type: Spontaneous
  Country: US (occurrence: US)
  Receive Date: 20160304
  Receipt Date: 20160304
  Transmission Date: 20160526
  Serious: No
  Sender: FDA-Public Use
  Company Number: US-JNJFOC-20160200171

PATIENT
  Age: 37 Year
  Sex: Male
  Weight: 74.84 kg

DRUGS (2)
  1. MENS ROGAINE EXTRA STRENGTH [Suspect]
     Active Substance: MINOXIDIL
     Route: 061
  2. MENS ROGAINE EXTRA STRENGTH [Suspect]
     Active Substance: MINOXIDIL
     Indication: ALOPECIA
     Route: 061
     Dates: end: 20160127

REACTIONS (4)
  - Pruritus [Recovered/Resolved]
  - Dandruff [Recovering/Resolving]
  - Erythema [Recovered/Resolved]
  - Drug administered at inappropriate site [Recovering/Resolving]

NARRATIVE: CASE EVENT DATE: 20160118
